FAERS Safety Report 6709585-3 (Version None)
Quarter: 2010Q2

REPORT INFORMATION
  Report Type: 
  Country: None (occurrence: None)
  Receive Date: 20100503
  Receipt Date: 20100503
  Transmission Date: 20101027
  Serious: Yes (Hospitalization)
  Sender: FDA-Public Use
  Company Number: None

PATIENT
  Sex: Male
  Weight: 87.9978 kg

DRUGS (2)
  1. BENDAMUSTINE 100MG VIAL [Suspect]
     Indication: SMALL CELL LUNG CANCER STAGE UNSPECIFIED
     Dosage: 120MG/M2 IV D1,2 Q21 DAY
     Dates: start: 20100315
  2. BENDAMUSTINE 100MG VIAL [Suspect]
     Indication: SMALL CELL LUNG CANCER STAGE UNSPECIFIED
     Dosage: 120MG/M2 IV D1,2 Q21 DAY
     Dates: start: 20100316

REACTIONS (2)
  - PNEUMONIA [None]
  - TROPONIN INCREASED [None]
